FAERS Safety Report 10143012 (Version 2)
Quarter: 2014Q2

REPORT INFORMATION
  Report Type: Spontaneous
  Country: US (occurrence: US)
  Receive Date: 20140430
  Receipt Date: 20140519
  Transmission Date: 20141212
  Serious: Yes (Other)
  Sender: FDA-Public Use
  Company Number: US-PFIZER INC-2014117884

PATIENT
  Age: 49 Year
  Sex: 0

DRUGS (6)
  1. NEURONTIN [Suspect]
     Dosage: UNK
  2. IBUPROFEN [Suspect]
     Dosage: UNK
  3. GLIPIZIDE [Suspect]
     Dosage: UNK
  4. ASPIRIN [Suspect]
     Dosage: UNK
  5. SINGULAIR [Suspect]
     Dosage: UNK
  6. CORTISONE [Suspect]
     Dosage: UNK

REACTIONS (4)
  - Gastric haemorrhage [Unknown]
  - Epigastric discomfort [Unknown]
  - Muscle spasms [Unknown]
  - Drug hypersensitivity [Unknown]
